FAERS Safety Report 4294303-1 (Version None)
Quarter: 2004Q1

REPORT INFORMATION
  Report Type: 
  Country: None (occurrence: None)
  Receive Date: 20040212
  Receipt Date: 20040212
  Transmission Date: 20041129
  Serious: No
  Sender: FDA-Public Use
  Company Number: None

PATIENT
  Sex: Female
  Weight: 48.5349 kg

DRUGS (17)
  1. VANCOMYCIN [Suspect]
     Indication: CYSTIC FIBROSIS
     Dosage: 1 GM OZY
     Dates: start: 20040207
  2. ZOSYN [Concomitant]
  3. CREON [Concomitant]
  4. PROGRAF [Concomitant]
  5. BACTRIM [Concomitant]
  6. PROTONIX [Concomitant]
  7. CELLCEPT [Concomitant]
  8. SPORANOX [Concomitant]
  9. OSCAL [Concomitant]
  10. PREDNISONE [Concomitant]
  11. VALCYTE [Concomitant]
  12. NYSTATIN [Concomitant]
  13. ADEK [Concomitant]
  14. FOSAMAX [Concomitant]
  15. COMBIVENT [Concomitant]
  16. INSULIN [Concomitant]
  17. CIPRO [Concomitant]

REACTIONS (1)
  - RED MAN SYNDROME [None]
